FAERS Safety Report 10652377 (Version 3)
Quarter: 2015Q2

REPORT INFORMATION
  Report Type: Spontaneous
  Country: JP (occurrence: JP)
  Receive Date: 20141215
  Receipt Date: 20150402
  Transmission Date: 20150821
  Serious: Yes (Death, Hospitalization)
  Sender: FDA-Public Use
  Company Number: JP-MALLINCKRODT-T201404386

PATIENT
  Age: 62 Year
  Sex: Male
  Weight: 57 kg

DRUGS (20)
  1. METHADONE [Suspect]
     Active Substance: METHADONE HYDROCHLORIDE
     Dosage: 10MG (DAILY DOSE 20MG)
     Route: 048
     Dates: start: 20141217, end: 20141229
  2. HYPEN [Concomitant]
     Active Substance: ETODOLAC
     Dosage: 400 MG
     Route: 048
     Dates: end: 20141229
  3. REFLEX [Concomitant]
     Active Substance: MIRTAZAPINE
     Dosage: 15 MG
     Route: 048
     Dates: start: 20140807, end: 20141113
  4. CERCINE [Concomitant]
     Active Substance: DIAZEPAM
     Dosage: 5 MG
     Route: 051
     Dates: start: 20140902, end: 20140903
  5. FLIVAS [Concomitant]
     Active Substance: NAFTOPIDIL
     Dosage: 75 MG
     Route: 048
     Dates: end: 20141229
  6. MEXITIL [Concomitant]
     Active Substance: MEXILETINE HYDROCHLORIDE
     Dosage: 300 MG
     Route: 048
     Dates: start: 20140730, end: 20141229
  7. METHADONE [Suspect]
     Active Substance: METHADONE HYDROCHLORIDE
     Dosage: 10 MG (20 MG DAILY DOSE)
     Route: 048
     Dates: start: 20140807, end: 20140903
  8. LYRICA [Concomitant]
     Active Substance: PREGABALIN
     Dosage: 75 MG
     Route: 048
     Dates: end: 20141127
  9. MEILAX [Concomitant]
     Active Substance: ETHYL LOFLAZEPATE
     Dosage: 1 MG
     Route: 048
     Dates: start: 20140724, end: 20141127
  10. METHADONE [Suspect]
     Active Substance: METHADONE HYDROCHLORIDE
     Dosage: 10 MG (30 MG DAILY DOSE)
     Route: 048
     Dates: start: 20140904, end: 20141216
  11. XYLOCAINE [Concomitant]
     Active Substance: LIDOCAINE HYDROCHLORIDE
     Dosage: 100 MG
     Route: 051
     Dates: end: 20140910
  12. NOVORAPID [Concomitant]
     Active Substance: INSULIN ASPART
     Dosage: UNK
     Route: 051
     Dates: end: 20141228
  13. OXINORM [Concomitant]
     Active Substance: OXYCODONE HYDROCHLORIDE
     Dosage: 5-10 MG, PRN
     Route: 048
     Dates: start: 20140721
  14. CERCINE [Concomitant]
     Active Substance: DIAZEPAM
     Dosage: 2 MG
     Route: 048
     Dates: start: 20140910, end: 20140921
  15. NOVOLIN R [Concomitant]
     Active Substance: INSULIN HUMAN
     Dosage: UNK
     Route: 051
     Dates: end: 20140801
  16. LANTUS [Concomitant]
     Active Substance: INSULIN GLARGINE
     Dosage: UNK
     Route: 051
     Dates: end: 20141228
  17. METHADONE [Suspect]
     Active Substance: METHADONE HYDROCHLORIDE
     Indication: CANCER PAIN
     Dosage: 5 MG (15 MG DAILY DOSE)
     Route: 048
     Dates: start: 20140722, end: 20140806
  18. LENDORMIN [Concomitant]
     Active Substance: BROTIZOLAM
     Dosage: 0.25 MG
     Route: 048
     Dates: end: 20141229
  19. LOXONIN [Concomitant]
     Active Substance: LOXOPROFEN SODIUM
     Dosage: 100 MG, PRN
     Route: 061
     Dates: start: 20140730, end: 20141229
  20. HUMULIN R [Concomitant]
     Active Substance: INSULIN HUMAN
     Dosage: UNK
     Route: 051
     Dates: start: 20141229, end: 20150103

REACTIONS (4)
  - Nausea [Recovering/Resolving]
  - Pancreatic carcinoma [Fatal]
  - Pyrexia [Recovered/Resolved]
  - Oropharyngeal pain [Recovered/Resolved]

NARRATIVE: CASE EVENT DATE: 20140824
